APPROVED DRUG PRODUCT: THIOTHIXENE
Active Ingredient: THIOTHIXENE
Strength: 5MG
Dosage Form/Route: CAPSULE;ORAL
Application: A071627 | Product #001
Applicant: WATSON LABORATORIES INC
Approved: Jun 25, 1987 | RLD: No | RS: No | Type: DISCN